FAERS Safety Report 6586454-3 (Version None)
Quarter: 2010Q1

REPORT INFORMATION
  Report Type: 
  Country: None (occurrence: None)
  Receive Date: 20100217
  Receipt Date: 20090306
  Transmission Date: 20100710
  Serious: No
  Sender: FDA-Public Use
  Company Number: US-ALLERGAN-0903059US

PATIENT
  Sex: Female

DRUGS (2)
  1. BOTOX COSMETIC [Suspect]
     Indication: SKIN WRINKLING
     Dosage: UNK, SINGLE
     Route: 030
     Dates: start: 20090305, end: 20090305
  2. JUVEDERM [Concomitant]
     Indication: SKIN WRINKLING

REACTIONS (4)
  - HEADACHE [None]
  - INJECTION SITE RASH [None]
  - INJECTION SITE SWELLING [None]
  - THERAPEUTIC RESPONSE DECREASED [None]
